FAERS Safety Report 4788413-X (Version None)
Quarter: 2005Q3

REPORT INFORMATION
  Report Type: 
  Country: None (occurrence: None)
  Receive Date: 20050920
  Receipt Date: 20040718
  Transmission Date: 20060218
  Serious: Yes (Hospitalization)
  Sender: FDA-Public Use
  Company Number: S01-USA-02334-01

PATIENT
  Age: 31 Year
  Sex: Male

DRUGS (4)
  1. CELEXA [Suspect]
     Indication: SOCIAL PHOBIA
     Dosage: 400 MG ONCE PO
     Route: 048
     Dates: start: 20011202, end: 20011202
  2. CELEXA [Suspect]
     Indication: SOCIAL PHOBIA
     Dosage: 20 MG QD PO
     Route: 048
     Dates: start: 20011104, end: 20011201
  3. ALCOHOL [Suspect]
     Dates: start: 20011202, end: 20011202
  4. NEURONTIN [Concomitant]

REACTIONS (6)
  - BUNDLE BRANCH BLOCK LEFT [None]
  - ELECTROCARDIOGRAM QT CORRECTED INTERVAL PROLONGED [None]
  - GRAND MAL CONVULSION [None]
  - INTENTIONAL MISUSE [None]
  - RHABDOMYOLYSIS [None]
  - TACHYCARDIA [None]
